FAERS Safety Report 7927352-X (Version None)
Quarter: 2011Q4

REPORT INFORMATION
  Report Type: 
  Country: None (occurrence: None)
  Receive Date: 20111118
  Receipt Date: 20111111
  Transmission Date: 20120403
  Serious: Yes (Other)
  Sender: FDA-Public Use
  Company Number: PHEH2011US009335

PATIENT
  Sex: Female

DRUGS (2)
  1. AREDIA [Suspect]
     Indication: HYPERCALCAEMIA
  2. AREDIA [Suspect]
     Indication: MULTIPLE MYELOMA
     Dosage: 90 MG, QMO
     Route: 042
     Dates: start: 19980119, end: 20010524

REACTIONS (5)
  - HAEMORRHOIDS [None]
  - CARPAL TUNNEL SYNDROME [None]
  - WOUND DEHISCENCE [None]
  - PEPTIC ULCER [None]
  - MUSCLE SPASMS [None]
